FAERS Safety Report 11528042 (Version 1)
Quarter: 2015Q3

REPORT INFORMATION
  Report Type: Spontaneous
  Country: US (occurrence: US)
  Receive Date: 20150921
  Receipt Date: 20150921
  Transmission Date: 20151125
  Serious: No
  Sender: FDA-Public Use
  Company Number: US-BRISTOL-MYERS SQUIBB COMPANY-14953301

PATIENT
  Sex: Female
  Weight: 59 kg

DRUGS (1)
  1. COUMADIN [Suspect]
     Active Substance: WARFARIN SODIUM
     Indication: PULMONARY EMBOLISM
     Dosage: 7.5 MG, UNK
     Route: 065
     Dates: start: 20091201, end: 20100108

REACTIONS (1)
  - Maternal exposure during pregnancy [Unknown]
